FAERS Safety Report 6824125-6 (Version None)
Quarter: 2010Q3

REPORT INFORMATION
  Report Type: 
  Country: None (occurrence: None)
  Receive Date: 20100708
  Receipt Date: 20061004
  Transmission Date: 20110219
  Serious: No
  Sender: FDA-Public Use
  Company Number: US-PFIZER INC-2006123008

PATIENT
  Sex: Female
  Weight: 76.2 kg

DRUGS (15)
  1. CHANTIX [Suspect]
     Indication: EX-TOBACCO USER
     Dates: start: 20060724
  2. MS CONTIN [Suspect]
     Dates: start: 20060201, end: 20060101
  3. ENTOCORT EC [Concomitant]
  4. XANAX [Concomitant]
  5. LORTAB [Concomitant]
  6. MOBIC [Concomitant]
  7. LOMOTIL [Concomitant]
  8. VALSARTAN [Concomitant]
     Indication: HYPERTENSION
  9. LEXAPRO [Concomitant]
  10. ALBUTEROL [Concomitant]
  11. FLEXERIL [Concomitant]
  12. HYOSCINE METHOBROMIDE [Concomitant]
  13. ELAVIL [Concomitant]
  14. NEXIUM [Concomitant]
  15. VITAMINS [Concomitant]

REACTIONS (10)
  - ABDOMINAL PAIN [None]
  - ASTHENIA [None]
  - CLOSTRIDIAL INFECTION [None]
  - CROHN'S DISEASE [None]
  - DECREASED APPETITE [None]
  - DIARRHOEA [None]
  - DIZZINESS [None]
  - MALAISE [None]
  - NAUSEA [None]
  - WITHDRAWAL SYNDROME [None]
